FAERS Safety Report 13255739 (Version 1)
Quarter: 2017Q1

REPORT INFORMATION
  Report Type: Spontaneous
  Country: US (occurrence: US)
  Receive Date: 20170218
  Receipt Date: 20170218
  Transmission Date: 20170428
  Serious: No
  Sender: FDA-Public Use
  Company Number: None

PATIENT
  Age: 55 Year
  Sex: Male
  Weight: 69.75 kg

DRUGS (4)
  1. MAGNESIUM [Concomitant]
     Active Substance: MAGNESIUM
  2. SUMATRIPTAN. [Concomitant]
     Active Substance: SUMATRIPTAN
  3. GADAVIST [Suspect]
     Active Substance: GADOBUTROL
     Indication: NUCLEAR MAGNETIC RESONANCE IMAGING
     Dosage: ?          QUANTITY:1 INJECTION(S);OTHER FREQUENCY:ONE TIME;??INTRAVENOUS (NOT OTHERWISE SPECIFIED)
     Route: 042
  4. B2 [Concomitant]

REACTIONS (1)
  - Heart rate increased [None]

NARRATIVE: CASE EVENT DATE: 20170218
